FAERS Safety Report 5551747-5 (Version None)
Quarter: 2007Q4

REPORT INFORMATION
  Report Type: 
  Country: None (occurrence: None)
  Receive Date: 20071212
  Receipt Date: 20071130
  Transmission Date: 20080405
  Serious: Yes (Other)
  Sender: FDA-Public Use
  Company Number: GB-PFIZER INC-2007095256

PATIENT
  Sex: Female
  Weight: 89 kg

DRUGS (3)
  1. CHAMPIX [Suspect]
     Indication: SMOKING CESSATION THERAPY
     Route: 048
  2. SIMVASTATIN [Concomitant]
     Route: 048
  3. CLONIDINE HYDROCHLORIDE [Concomitant]
     Route: 048

REACTIONS (3)
  - BACK PAIN [None]
  - HAEMATURIA [None]
  - HAEMOLYSIS [None]
